FAERS Safety Report 11112469 (Version 1)
Quarter: 2015Q2

REPORT INFORMATION
  Report Type: Spontaneous
  Country: US (occurrence: US)
  Receive Date: 20150514
  Receipt Date: 20150514
  Transmission Date: 20150821
  Serious: Yes (Hospitalization)
  Sender: FDA-Public Use
  Company Number: US-SUN PHARMACEUTICAL INDUSTRIES LTD-2015SUN01102

PATIENT
  Age: 45 Year
  Sex: Female

DRUGS (6)
  1. LISINOPRIL. [Concomitant]
     Active Substance: LISINOPRIL
     Indication: HYPERTENSION
     Dosage: 25 MG, UNK
  2. LITHIUM CARBONATE. [Suspect]
     Active Substance: LITHIUM CARBONATE
     Indication: MANIA
     Dosage: 300 MG, BID, INITIALLY
     Route: 048
  3. LACTULOSE. [Interacting]
     Active Substance: LACTULOSE
     Indication: CONSTIPATION
     Dosage: 30 ML, UNK
     Route: 065
  4. LITHIUM CARBONATE. [Interacting]
     Active Substance: LITHIUM CARBONATE
     Dosage: 450 MG IN THE MORNING + 600 MG AT NIGHT
     Route: 048
  5. RISPERIDONE. [Concomitant]
     Active Substance: RISPERIDONE
     Indication: MANIA
     Dosage: 2 MG, OD, NIGHTLY
     Route: 048
  6. HYDROCHLOROTHIAZIDE. [Concomitant]
     Active Substance: HYDROCHLOROTHIAZIDE
     Indication: HYPERTENSION
     Dosage: 25 MG, DAILY

REACTIONS (3)
  - Fatigue [Unknown]
  - Drug interaction [Recovered/Resolved]
  - Toxicity to various agents [Recovered/Resolved]
